FAERS Safety Report 7585065-0 (Version None)
Quarter: 2011Q2

REPORT INFORMATION
  Report Type: 
  Country: None (occurrence: None)
  Receive Date: 20110630
  Receipt Date: 20110621
  Transmission Date: 20111010
  Serious: Yes (Hospitalization)
  Sender: FDA-Public Use
  Company Number: US-ASTRAZENECA-2010SE08142

PATIENT
  Age: 80 Year
  Sex: Female

DRUGS (2)
  1. CRESTOR [Concomitant]
     Route: 048
  2. ARIMIDEX [Suspect]
     Route: 048
     Dates: start: 20090101

REACTIONS (1)
  - CARDIAC PACEMAKER INSERTION [None]
